FAERS Safety Report 8947947 (Version 1)
Quarter: 2012Q4

REPORT INFORMATION
  Report Type: Spontaneous
  Country: JP (occurrence: None)
  Receive Date: 20121127
  Receipt Date: 20121127
  Transmission Date: 20130627
  Serious: Yes (Other)
  Sender: FDA-Public Use
  Company Number: 2012SP003780

PATIENT
  Age: 62 Year
  Sex: Female

DRUGS (6)
  1. FLOUROURACIL [Suspect]
     Indication: MALIGNANT NEOPLASM OF SIGMOID COLON
  2. FLOUROURACIL [Suspect]
     Indication: HEPATIC METASTASES
  3. OXALIPLATIN (OXALIPLATIN) [Suspect]
     Indication: MALIGNANT NEOPLASM OF SIGMOID COLON
  4. OXALIPLATIN (OXALIPLATIN) [Suspect]
     Indication: HEPATIC METASTASES
  5. FOLINIC ACID [Suspect]
     Indication: MALIGNANT NEOPLASM OF SIGMOID COLON
  6. FOLINIC ACID [Suspect]
     Indication: HEPATIC METASTASES

REACTIONS (1)
  - Intussusception [None]
